FAERS Safety Report 20346538 (Version 1)
Quarter: 2022Q1

REPORT INFORMATION
  Report Type: Spontaneous
  Country: US (occurrence: None)
  Receive Date: 20220115
  Receipt Date: 20220115
  Transmission Date: 20220423
  Serious: Yes (Other)
  Sender: FDA-Public Use
  Company Number: None

PATIENT
  Age: 6 Month
  Sex: Male
  Weight: 7.65 kg

DRUGS (1)
  1. BABY TEETHING (HYLAND HOMEOPATHIC) [Suspect]
     Active Substance: HOMEOPATHICS
     Indication: Teething
     Dosage: OTHER QUANTITY : 1 TABLET(S);?OTHER FREQUENCY : EVERY 15 MINUTES;?
     Route: 048
     Dates: start: 20220105, end: 20220113

REACTIONS (2)
  - Urine output decreased [None]
  - Decreased appetite [None]

NARRATIVE: CASE EVENT DATE: 20220113
